FAERS Safety Report 16668311 (Version 1)
Quarter: 2019Q3

REPORT INFORMATION
  Report Type: Spontaneous
  Country: US (occurrence: US)
  Receive Date: 20190802
  Receipt Date: 20190802
  Transmission Date: 20191004
  Serious: Yes (Disabling)
  Sender: FDA-Public Use
  Company Number: None

PATIENT
  Age: 4 Month
  Sex: Male
  Weight: 8.55 kg

DRUGS (3)
  1. HYDROCORTISONE OINTMENT, USP 2.5% [Suspect]
     Active Substance: HYDROCORTISONE
     Indication: ECZEMA
     Route: 061
  2. BENADRYL [Concomitant]
     Active Substance: DIPHENHYDRAMINE HYDROCHLORIDE
  3. ATARAX [Concomitant]
     Active Substance: HYDROXYZINE HYDROCHLORIDE

REACTIONS (6)
  - Rash generalised [None]
  - Dry skin [None]
  - Pruritus [None]
  - Erythema [None]
  - Skin weeping [None]
  - Skin exfoliation [None]

NARRATIVE: CASE EVENT DATE: 20190129
